FAERS Safety Report 6176096-6 (Version None)
Quarter: 2009Q2

REPORT INFORMATION
  Report Type: 
  Country: None (occurrence: None)
  Receive Date: 20090501
  Receipt Date: 20090417
  Transmission Date: 20091009
  Serious: Yes (Disabling, Other)
  Sender: FDA-Public Use
  Company Number: GB-BAUSCH-2009BL001751

PATIENT
  Age: 33 Year
  Sex: Male

DRUGS (15)
  1. PREDNISOLONE [Suspect]
     Indication: PEMPHIGUS
     Route: 048
     Dates: start: 19910101
  2. PREDNISOLONE [Suspect]
     Route: 048
  3. PREDNISOLONE [Suspect]
     Route: 048
  4. PREDNISOLONE [Suspect]
     Route: 048
  5. PREDNISOLONE [Suspect]
     Route: 048
     Dates: end: 20041101
  6. PREDNISOLONE [Suspect]
     Route: 048
     Dates: start: 20041101
  7. PREDNISOLONE [Suspect]
     Route: 048
  8. CYCLOSPORINE [Suspect]
     Indication: PEMPHIGUS
  9. DAPSONE [Suspect]
     Indication: PEMPHIGUS
  10. MINOCYCLINE HCL [Suspect]
     Indication: PEMPHIGUS
  11. AZATHIOPRINE [Suspect]
     Indication: PEMPHIGUS
  12. AZATHIOPRINE [Suspect]
  13. AZATHIOPRINE [Suspect]
  14. GOLD [Suspect]
     Indication: PEMPHIGUS
  15. NICOTINAMIDE [Suspect]
     Indication: PEMPHIGUS

REACTIONS (12)
  - BETA HAEMOLYTIC STREPTOCOCCAL INFECTION [None]
  - BODY TINEA [None]
  - CANDIDIASIS [None]
  - DIABETES MELLITUS [None]
  - DRUG INEFFECTIVE [None]
  - HERPES SIMPLEX [None]
  - HERPES ZOSTER [None]
  - OSTEOPENIA [None]
  - PSEUDOMONAS INFECTION [None]
  - STAPHYLOCOCCAL INFECTION [None]
  - TENDON RUPTURE [None]
  - TINEA VERSICOLOUR [None]
